FAERS Safety Report 15420860 (Version 1)
Quarter: 2018Q3

REPORT INFORMATION
  Report Type: Spontaneous
  Country: US (occurrence: US)
  Receive Date: 20180924
  Receipt Date: 20180924
  Transmission Date: 20181010
  Serious: No
  Sender: FDA-Public Use
  Company Number: US-ALLERGAN-1767773US

PATIENT
  Age: 78 Year
  Sex: Male

DRUGS (3)
  1. LINZESS [Suspect]
     Active Substance: LINACLOTIDE
     Indication: CONSTIPATION
     Dosage: 145 ?G, UNK
     Route: 048
  2. LINZESS [Suspect]
     Active Substance: LINACLOTIDE
     Dosage: 72 ?G, UNK
     Route: 048
  3. OXYCODONE [Concomitant]
     Active Substance: OXYCODONE
     Indication: CONSTIPATION
     Route: 048

REACTIONS (4)
  - Flatulence [Recovering/Resolving]
  - Off label use [Unknown]
  - Abdominal distension [Recovering/Resolving]
  - Diarrhoea [Recovering/Resolving]
